FAERS Safety Report 17714219 (Version 1)
Quarter: 2020Q2

REPORT INFORMATION
  Report Type: Spontaneous
  Country: US (occurrence: US)
  Receive Date: 20200424
  Receipt Date: 20200424
  Transmission Date: 20200714
  Serious: Yes (Hospitalization, Other)
  Sender: FDA-Public Use
  Company Number: None

PATIENT
  Age: 44 Year
  Sex: Male

DRUGS (10)
  1. METOPROLOL TARTRATE. [Concomitant]
     Active Substance: METOPROLOL TARTRATE
  2. ATORVASTATIN [Concomitant]
     Active Substance: ATORVASTATIN
  3. XOLAIR [Suspect]
     Active Substance: OMALIZUMAB
     Indication: IDIOPATHIC URTICARIA
     Route: 058
     Dates: start: 20150730
  4. LISINOPRIL. [Concomitant]
     Active Substance: LISINOPRIL
  5. NITRIGLYCERN [Concomitant]
  6. BRILINTA [Concomitant]
     Active Substance: TICAGRELOR
  7. ASPIRIN. [Concomitant]
     Active Substance: ASPIRIN
  8. DULOXETINE. [Concomitant]
     Active Substance: DULOXETINE
  9. OXYCODONE [Concomitant]
     Active Substance: OXYCODONE
  10. PREVACID [Concomitant]
     Active Substance: LANSOPRAZOLE

REACTIONS (2)
  - Therapy interrupted [None]
  - Myocardial infarction [None]
